FAERS Safety Report 6000135-6 (Version None)
Quarter: 2008Q4

REPORT INFORMATION
  Report Type: 
  Country: None (occurrence: None)
  Receive Date: 20081215
  Receipt Date: 20080708
  Transmission Date: 20090506
  Serious: No
  Sender: FDA-Public Use
  Company Number: US-AMGEN-KDL235452

PATIENT
  Sex: Female

DRUGS (4)
  1. ENBREL [Suspect]
     Indication: RHEUMATOID ARTHRITIS
     Route: 058
     Dates: start: 20010109
  2. PLAQUENIL [Concomitant]
     Route: 048
     Dates: start: 19940101
  3. SULFASALAZINE [Concomitant]
     Route: 048
     Dates: start: 19940101
  4. METHOTREXATE [Concomitant]
     Route: 058
     Dates: start: 20010101

REACTIONS (9)
  - EYE SWELLING [None]
  - FATIGUE [None]
  - INJECTION SITE ERYTHEMA [None]
  - INJECTION SITE HAEMATOMA [None]
  - INJECTION SITE PRURITUS [None]
  - INJECTION SITE SWELLING [None]
  - RASH [None]
  - SINUSITIS [None]
  - WEIGHT INCREASED [None]
